FAERS Safety Report 7506342-5 (Version None)
Quarter: 2011Q2

REPORT INFORMATION
  Report Type: 
  Country: None (occurrence: None)
  Receive Date: 20110526
  Receipt Date: 20100719
  Transmission Date: 20111010
  Serious: No
  Sender: FDA-Public Use
  Company Number: US-ABBOTT-10P-163-0658757-00

PATIENT
  Sex: Male
  Weight: 67.192 kg

DRUGS (4)
  1. ZEMPLAR [Suspect]
     Indication: PRODUCT USED FOR UNKNOWN INDICATION
     Dates: start: 20090901
  2. AMARYL [Concomitant]
     Indication: DIABETES MELLITUS
  3. HYDROCHLOROTHIAZIDE [Concomitant]
     Indication: HYPERTENSION
  4. BYSTOLIC [Concomitant]
     Indication: HYPERTENSION

REACTIONS (1)
  - WEIGHT DECREASED [None]
